FAERS Safety Report 8450979-6 (Version None)
Quarter: 2012Q2

REPORT INFORMATION
  Report Type: 
  Country: None (occurrence: None)
  Receive Date: 20120620
  Receipt Date: 20120620
  Transmission Date: 20120825
  Serious: Yes (Hospitalization)
  Sender: FDA-Public Use
  Company Number: CZ-PFIZER INC-2009RR-28679

PATIENT
  Age: 79 Year
  Sex: Male

DRUGS (1)
  1. VERAPAMIL HCL [Suspect]
     Dosage: UNK
     Route: 048

REACTIONS (6)
  - TOXICITY TO VARIOUS AGENTS [None]
  - OLIGURIA [None]
  - HYPOTENSION [None]
  - BRADYCARDIA [None]
  - COMA [None]
  - OVERDOSE [None]
